FAERS Safety Report 6884587-5 (Version None)
Quarter: 2010Q3

REPORT INFORMATION
  Report Type: 
  Country: None (occurrence: None)
  Receive Date: 20100729
  Receipt Date: 20070716
  Transmission Date: 20110219
  Serious: Yes (Other)
  Sender: FDA-Public Use
  Company Number: US-PFIZER INC-2007052252

PATIENT

DRUGS (2)
  1. CELEBREX [Suspect]
     Dates: start: 20060327
  2. SKELAXIN [Suspect]
     Dosage: 2 EVERY 2 DAYS
     Dates: start: 20060327, end: 20060410

REACTIONS (1)
  - STEVENS-JOHNSON SYNDROME [None]
